FAERS Safety Report 17321932 (Version 1)
Quarter: 2020Q1

REPORT INFORMATION
  Report Type: Other
  Country: US (occurrence: US)
  Receive Date: 20200127
  Receipt Date: 20200127
  Transmission Date: 20200409
  Serious: No
  Sender: FDA-Public Use
  Company Number: US-ACORDA-ACO_159681_2019

PATIENT
  Age: 46 Year
  Sex: Female
  Weight: 58.96 kg

DRUGS (1)
  1. AMPYRA [Suspect]
     Active Substance: DALFAMPRIDINE
     Indication: MULTIPLE SCLEROSIS
     Dosage: 20 MILLIGRAM, BID
     Route: 048
     Dates: start: 20190613

REACTIONS (6)
  - Extra dose administered [Unknown]
  - Oral pruritus [Unknown]
  - Glossodynia [Unknown]
  - Oral pain [Unknown]
  - Glossitis [Unknown]
  - Stomatitis [Unknown]

NARRATIVE: CASE EVENT DATE: 20190613
